FAERS Safety Report 8853030 (Version 1)
Quarter: 2012Q4

REPORT INFORMATION
  Report Type: 
  Country: US (occurrence: US)
  Receive Date: 20121022
  Receipt Date: 20121022
  Transmission Date: 20130627
  Serious: Yes (Other)
  Sender: FDA-Public Use
  Company Number: US-PFIZER INC-US-WYE-H07706909

PATIENT
  Age: 53 Year
  Sex: Female

DRUGS (5)
  1. PREMARIN [Suspect]
     Indication: HORMONE REPLACEMENT THERAPY
     Dosage: 0.625 mg, UNK
     Dates: start: 1993, end: 200212
  2. PROVERA [Suspect]
     Indication: HORMONE REPLACEMENT THERAPY
     Dosage: 10 mg, UNK
     Dates: start: 1993, end: 200212
  3. CYCRIN [Suspect]
     Indication: HORMONE REPLACEMENT THERAPY
     Dosage: 10 mg, UNK
     Dates: start: 1993, end: 200212
  4. MEDROXYPROGESTERONE ACETATE [Suspect]
     Indication: HORMONE REPLACEMENT THERAPY
     Dosage: 10 mg, UNK
     Dates: start: 1993, end: 200212
  5. MEDROXYPROGESTERONE ACETATE [Suspect]
     Indication: HORMONE REPLACEMENT THERAPY
     Dosage: UNK
     Route: 048
     Dates: start: 19980723, end: 20020701

REACTIONS (1)
  - Breast cancer female [Unknown]
